FAERS Safety Report 4850546-7 (Version None)
Quarter: 2005Q4

REPORT INFORMATION
  Report Type: 
  Country: None (occurrence: None)
  Receive Date: 20051208
  Receipt Date: 20051125
  Transmission Date: 20060501
  Serious: Yes (Life-Threatening, Hospitalization)
  Sender: FDA-Public Use
  Company Number: 2005033899

PATIENT
  Age: 55 Year
  Sex: Male
  Weight: 58 kg

DRUGS (10)
  1. VIAGRA [Suspect]
     Indication: ILL-DEFINED DISORDER
     Dosage: 25 MG (AS NECESSARY), ORAL/SIX MONTHS AGO
     Route: 048
  2. ALL  OTHER THERAPEUTIC PRODUCTS (ALL OTHER THERAPEUTIC PRODUCTS) [Concomitant]
  3. PROPIVERINE HYDROCHLORIDE (PROPIVERINE HYDROCHLORIDE) [Concomitant]
  4. REBAMIPIDE (REBAMIPIDE) [Concomitant]
  5. CALCIIUM CARBONATE (CALCIUM CARBONATE) [Concomitant]
  6. ALLOPURINOL [Concomitant]
  7. FAMOTIDINE [Concomitant]
  8. AMLODIPINE BESYLATE [Concomitant]
  9. BOPINDOLOL (BOPINDOLOL) [Concomitant]
  10. SEVELAMER HYDROCHLORIDE (SEVELAMER HYDROCHLORIDE) [Concomitant]

REACTIONS (11)
  - ACUTE CORONARY SYNDROME [None]
  - ASPARTATE AMINOTRANSFERASE INCREASED [None]
  - BLOOD CREATININE INCREASED [None]
  - BLOOD LACTATE DEHYDROGENASE INCREASED [None]
  - BLOOD UREA INCREASED [None]
  - CORONARY ARTERY OCCLUSION [None]
  - DEHYDRATION [None]
  - HAEMATOCRIT DECREASED [None]
  - HAEMODIALYSIS [None]
  - HAEMOGLOBIN DECREASED [None]
  - RED BLOOD CELL COUNT DECREASED [None]
